FAERS Safety Report 10631270 (Version 2)
Quarter: 2014Q4

REPORT INFORMATION
  Report Type: Spontaneous
  Country: US (occurrence: US)
  Receive Date: 20141205
  Receipt Date: 20141205
  Transmission Date: 20150529
  Serious: No
  Sender: FDA-Public Use
  Company Number: US-BRISTOL-MYERS SQUIBB COMPANY-21377510

PATIENT
  Age: 50 Year
  Sex: Female

DRUGS (1)
  1. ABILIFY [Suspect]
     Active Substance: ARIPIPRAZOLE
     Indication: BIPOLAR II DISORDER
     Dosage: DOSE REDUCED TO 7.5MG
     Dates: start: 2006, end: 2014

REACTIONS (3)
  - Blepharospasm [Recovered/Resolved]
  - Muscle twitching [Recovering/Resolving]
  - Dyskinesia [Unknown]

NARRATIVE: CASE EVENT DATE: 201408
